FAERS Safety Report 14705789 (Version 4)
Quarter: 2025Q3

REPORT INFORMATION
  Report Type: Spontaneous
  Country: EU (occurrence: EU)
  Receive Date: 20180402
  Receipt Date: 20250801
  Transmission Date: 20251020
  Serious: Yes (Life-Threatening, Hospitalization, Disabling, Other)
  Sender: SANOFI AVENTIS
  Company Number: EU-NAPPMUNDI-GBR-2018-0055339

PATIENT
  Age: 48 Year
  Sex: Female

DRUGS (7)
  1. ANTI-THYMOCYTE GLOBULIN (RABBIT) NOS [Suspect]
     Active Substance: LAPINE T-LYMPHOCYTE IMMUNE GLOBULIN
     Indication: Prophylaxis against graft versus host disease
  2. FLUDARABINE PHOSPHATE [Suspect]
     Active Substance: FLUDARABINE PHOSPHATE
     Route: 065
  3. CYCLOPHOSPHAMIDE [Suspect]
     Active Substance: CYCLOPHOSPHAMIDE
  4. METHOTREXATE [Suspect]
     Active Substance: METHOTREXATE
     Indication: Prophylaxis against graft versus host disease
  5. CYCLOSPORINE [Suspect]
     Active Substance: CYCLOSPORINE
     Indication: Prophylaxis against graft versus host disease
  6. CYCLOSPORINE [Suspect]
     Active Substance: CYCLOSPORINE
     Indication: Aplastic anaemia
  7. CLINDAMYCIN [Concomitant]
     Active Substance: CLINDAMYCIN
     Indication: Retinitis

REACTIONS (11)
  - Blindness unilateral [Not Recovered/Not Resolved]
  - Choroidal detachment [Recovered/Resolved]
  - Carotid artery occlusion [Recovered/Resolved]
  - Vision blurred [Not Recovered/Not Resolved]
  - Meningitis [Recovered/Resolved]
  - Scedosporium infection [Recovered/Resolved]
  - Pulmonary mass [Recovering/Resolving]
  - Aphasia [Recovered/Resolved]
  - Hemiparesis [Recovered/Resolved]
  - Conjunctival hyperaemia [Recovering/Resolving]
  - Headache [Not Recovered/Not Resolved]
